FAERS Safety Report 9305129 (Version 1)
Quarter: 2013Q2

REPORT INFORMATION
  Report Type: Spontaneous
  Country: SE (occurrence: SE)
  Receive Date: 20130523
  Receipt Date: 20130523
  Transmission Date: 20140414
  Serious: Yes (Disabling)
  Sender: FDA-Public Use
  Company Number: SE-ROCHE-1226379

PATIENT
  Age: 31 Year
  Sex: Female

DRUGS (2)
  1. PEGASYS [Suspect]
     Indication: CHRONIC HEPATITIS C
     Route: 058
     Dates: start: 20090223, end: 20090810
  2. COPEGUS [Suspect]
     Indication: CHRONIC HEPATITIS C
     Dosage: 400 MG AND 600 MG
     Route: 048
     Dates: start: 20090223, end: 20090810

REACTIONS (3)
  - Pain in extremity [Unknown]
  - Neck pain [Unknown]
  - Foot fracture [Not Recovered/Not Resolved]
